FAERS Safety Report 14756091 (Version 1)
Quarter: 2018Q2

REPORT INFORMATION
  Report Type: Spontaneous
  Country: US (occurrence: US)
  Receive Date: 20180413
  Receipt Date: 20180413
  Transmission Date: 20180711
  Serious: No
  Sender: FDA-Public Use
  Company Number: US-BAYER-2018-065497

PATIENT
  Age: 76 Year
  Sex: Male
  Weight: 91.97 kg

DRUGS (1)
  1. MIRALAX [Suspect]
     Active Substance: POLYETHYLENE GLYCOL 3350
     Indication: GASTROINTESTINAL DISORDER
     Dosage: UNK
     Route: 048

REACTIONS (4)
  - Expired product administered [None]
  - Prescribed underdose [Unknown]
  - Steatorrhoea [Unknown]
  - Abnormal faeces [Unknown]
